FAERS Safety Report 8576585 (Version 3)
Quarter: 2013Q1

REPORT INFORMATION
  Report Type: Report from Study
  Country: US (occurrence: US)
  Receive Date: 20120523
  Receipt Date: 20130226
  Transmission Date: 20140127
  Serious: Yes (Hospitalization)
  Sender: FDA-Public Use
  Company Number: US-TEVA-2011005690

PATIENT
  Age: 48 Year
  Sex: Female
  Weight: 68 kg

DRUGS (8)
  1. TREANDA [Suspect]
     Indication: PLASMA CELL MYELOMA
     Route: 042
     Dates: start: 20110906, end: 20110907
  2. TREANDA [Suspect]
     Route: 042
     Dates: start: 20111018, end: 20111019
  3. LENALIDOMIDE [Suspect]
     Indication: PLASMA CELL MYELOMA
     Dates: start: 20110906, end: 20111107
  4. DEXAMETHASONE [Suspect]
     Indication: PLASMA CELL MYELOMA
     Dates: start: 20110906, end: 20111108
  5. GRANISETRON [Concomitant]
  6. LOMOTIL [Concomitant]
  7. PROTONIX [Concomitant]
  8. ASPIRIN [Concomitant]

REACTIONS (2)
  - Chest pain [Recovered/Resolved]
  - Subarachnoid haemorrhage [Recovered/Resolved]
